FAERS Safety Report 8549376-4 (Version None)
Quarter: 2012Q3

REPORT INFORMATION
  Report Type: 
  Country: None (occurrence: None)
  Receive Date: 20120730
  Receipt Date: 20120720
  Transmission Date: 20120928
  Serious: Yes (Hospitalization, Other)
  Sender: FDA-Public Use
  Company Number: JP-VERTEX PHARMACEUTICALS INC.-AE-2012-003529

PATIENT
  Age: 49 Year
  Sex: Female

DRUGS (23)
  1. MUCOSTA [Concomitant]
     Route: 048
  2. PEGINTERFERON ALFA-2B [Concomitant]
     Route: 058
     Dates: start: 20120509, end: 20120606
  3. APHTASOLON [Concomitant]
     Route: 051
     Dates: start: 20120215, end: 20120222
  4. PRIMPERAN TAB [Concomitant]
     Dates: start: 20120522, end: 20120523
  5. PEGINTERFERON ALFA-2B [Concomitant]
     Indication: HEPATITIS C
     Route: 058
     Dates: start: 20120125, end: 20120229
  6. PEGINTERFERON ALFA-2B [Concomitant]
     Route: 058
     Dates: start: 20120425
  7. PEGINTERFERON ALFA-2B [Concomitant]
     Route: 058
     Dates: start: 20120613, end: 20120704
  8. PURSENNID [Concomitant]
     Route: 048
  9. TELAVIC (TELAPREVIR) [Suspect]
     Route: 048
     Dates: start: 20120302, end: 20120302
  10. REBETOL [Concomitant]
     Route: 048
     Dates: start: 20120314, end: 20120711
  11. DESYREL [Concomitant]
     Route: 048
  12. VITAMEDIN [Concomitant]
     Route: 048
     Dates: start: 20120629, end: 20120711
  13. TELAVIC (TELAPREVIR) [Suspect]
     Route: 048
  14. PEGINTERFERON ALFA-2B [Concomitant]
     Route: 058
     Dates: start: 20120502, end: 20120502
  15. LEXAPRO [Concomitant]
     Route: 048
  16. HACHIAZULE [Concomitant]
     Route: 051
     Dates: start: 20120222, end: 20120229
  17. MOTILIUM [Concomitant]
     Route: 048
     Dates: start: 20120522, end: 20120526
  18. TELAVIC (TELAPREVIR) [Suspect]
     Indication: HEPATITIS C
     Route: 048
     Dates: start: 20120125, end: 20120301
  19. REBETOL [Concomitant]
     Indication: HEPATITIS C
     Route: 048
     Dates: start: 20120125, end: 20120228
  20. REBETOL [Concomitant]
     Route: 048
     Dates: start: 20120229, end: 20120305
  21. PEGINTERFERON ALFA-2B [Concomitant]
     Route: 058
     Dates: start: 20120314
  22. LOXONIN [Concomitant]
     Route: 048
  23. LAC-B [Concomitant]
     Route: 048
     Dates: start: 20120522, end: 20120526

REACTIONS (6)
  - NEUTROPHIL COUNT DECREASED [None]
  - ASTHENIA [None]
  - DIZZINESS [None]
  - DEPRESSION [None]
  - RASH [None]
  - ANAEMIA [None]
